FAERS Safety Report 5537729-8 (Version None)
Quarter: 2007Q4

REPORT INFORMATION
  Report Type: 
  Country: None (occurrence: None)
  Receive Date: 20071207
  Receipt Date: 20071128
  Transmission Date: 20080405
  Serious: Yes (Life-Threatening, Other)
  Sender: FDA-Public Use
  Company Number: JP-SANOFI-SYNTHELABO-A01200712772

PATIENT
  Sex: Female
  Weight: 45 kg

DRUGS (7)
  1. CIPROFLOXACIN [Concomitant]
     Route: 042
     Dates: start: 20071105, end: 20071112
  2. CRAVIT [Concomitant]
     Route: 048
     Dates: start: 20071103, end: 20071105
  3. DECADRON [Concomitant]
     Route: 042
     Dates: start: 20070724, end: 20071010
  4. FLUOROURACIL [Concomitant]
     Dosage: 500MG/BODY=373.1MG/M2 IN BOLUS ON DAY 1 THEN 3000MG/BODY=2238.8MG/M2 AS CONTINUOUS INFUSION ON DAY 1
     Route: 042
     Dates: start: 20070808, end: 20070809
  5. ISOVORIN [Concomitant]
     Dosage: 250MG/BODY=186.6MG/M2 IN INFUSION ON DAY 1
     Route: 042
     Dates: start: 20070808, end: 20070808
  6. ELPLAT [Suspect]
     Indication: COLON CANCER
     Dosage: 100MG/BODY=74.6MG/M2 IN INFUSION ON DAY 1
     Route: 042
     Dates: start: 20070808, end: 20070808
  7. FOY [Concomitant]
     Route: 042
     Dates: start: 20071106, end: 20071112

REACTIONS (2)
  - DISSEMINATED INTRAVASCULAR COAGULATION [None]
  - NEUTROPENIA [None]
